FAERS Safety Report 8969629 (Version 4)
Quarter: 2013Q1

REPORT INFORMATION
  Report Type: Spontaneous
  Country: SI (occurrence: SI)
  Receive Date: 20121218
  Receipt Date: 20130121
  Transmission Date: 20140127
  Serious: Yes (Death)
  Sender: FDA-Public Use
  Company Number: SI-AMGEN-SVNSP2012080323

PATIENT
  Age: 49 Year
  Sex: Male
  Weight: 75 kg

DRUGS (2)
  1. ENBREL [Suspect]
     Indication: PSORIASIS
     Dosage: 50 MG, TWICE WEEKLY
     Route: 058
     Dates: end: 20090424
  2. ATORVASTATIN [Concomitant]
     Dosage: 20 MG, PERIODICALLY

REACTIONS (1)
  - Gastric cancer [Fatal]
